FAERS Safety Report 8228729-8 (Version None)
Quarter: 2012Q1

REPORT INFORMATION
  Report Type: 
  Country: None (occurrence: None)
  Receive Date: 20120322
  Receipt Date: 20091030
  Transmission Date: 20120608
  Serious: Yes (Hospitalization)
  Sender: FDA-Public Use
  Company Number: US-GLAXOSMITHKLINE-A0815211A

PATIENT
  Age: 63 Year
  Sex: Male
  Weight: 102.3 kg

DRUGS (5)
  1. METFORMIN HCL [Concomitant]
  2. AVANDIA [Suspect]
     Indication: DIABETES MELLITUS
     Dosage: 4MG TWICE PER DAY
     Route: 048
  3. VIOXX [Concomitant]
  4. PRAVACHOL [Concomitant]
  5. LOPRESSOR [Concomitant]

REACTIONS (2)
  - PERICARDITIS [None]
  - CARDIAC FAILURE CONGESTIVE [None]
